FAERS Safety Report 9452700 (Version 2)
Quarter: 2013Q3

REPORT INFORMATION
  Report Type: Spontaneous
  Country: US (occurrence: US)
  Receive Date: 20130812
  Receipt Date: 20130906
  Transmission Date: 20140515
  Serious: Yes (Hospitalization)
  Sender: FDA-Public Use
  Company Number: US-009507513-1308USA002733

PATIENT
  Age: 67 Year
  Sex: Female
  Weight: 68.27 kg

DRUGS (1)
  1. ZEGERID OTC CAPSULES [Suspect]
     Indication: GASTROOESOPHAGEAL REFLUX DISEASE
     Dosage: 20 MG, QD
     Route: 048
     Dates: start: 20130722, end: 20130725

REACTIONS (3)
  - Urinary retention [Recovered/Resolved]
  - Urinary tract infection [Unknown]
  - Pain [Unknown]
